FAERS Safety Report 6962433-9 (Version None)
Quarter: 2010Q3

REPORT INFORMATION
  Report Type: 
  Country: None (occurrence: None)
  Receive Date: 20100823
  Receipt Date: 20100720
  Transmission Date: 20110219
  Serious: No
  Sender: FDA-Public Use
  Company Number: 015762

PATIENT
  Sex: Male
  Weight: 31.7 kg

DRUGS (4)
  1. CIMZIA [Suspect]
     Indication: CROHN'S DISEASE
     Dosage: (200 MG 1X/MONTH SUBCUTANEOUS)
     Route: 058
     Dates: start: 20100301
  2. FLINTSTONE VITAMINS W/IRON [Concomitant]
  3. AZATHIOPRINE [Concomitant]
  4. URSO /00465701/ [Concomitant]

REACTIONS (2)
  - DRUG INEFFECTIVE [None]
  - INJECTION SITE PAIN [None]
